FAERS Safety Report 19367224 (Version 3)
Quarter: 2021Q2

REPORT INFORMATION
  Report Type: Report from Study
  Country: None (occurrence: DE)
  Receive Date: 20210602
  Receipt Date: 20210625
  Transmission Date: 20210717
  Serious: No
  Sender: FDA-Public Use
  Company Number: DE-ABBVIE-21P-062-3931114-00

PATIENT
  Age: 79 Year
  Sex: Male

DRUGS (1)
  1. LEUPROPRELIN (LEUPRORELIN ACETATE) [Suspect]
     Active Substance: LEUPROLIDE ACETATE
     Indication: PROSTATE CANCER
     Dosage: 11.25 MILLIGRAM, Q3MONTHS
     Route: 065

REACTIONS (4)
  - Weight increased [Unknown]
  - Hot flush [Unknown]
  - Spinal disorder [Unknown]
  - Performance status decreased [Unknown]
